FAERS Safety Report 15265137 (Version 1)
Quarter: 2018Q3

REPORT INFORMATION
  Report Type: Spontaneous
  Country: FR (occurrence: FR)
  Receive Date: 20180810
  Receipt Date: 20180810
  Transmission Date: 20181010
  Serious: Yes (Other)
  Sender: FDA-Public Use
  Company Number: PHHY2018FR067493

PATIENT
  Age: 67 Year
  Sex: Male
  Weight: 97 kg

DRUGS (1)
  1. AMOXICILLIN. [Suspect]
     Active Substance: AMOXICILLIN
     Indication: PNEUMONIA
     Dosage: 3 G, QD
     Route: 048
     Dates: start: 20180314, end: 20180319

REACTIONS (3)
  - Abdominal pain [Recovering/Resolving]
  - Hepatic enzyme increased [Recovering/Resolving]
  - Mixed liver injury [Recovering/Resolving]

NARRATIVE: CASE EVENT DATE: 20180327
